FAERS Safety Report 10081326 (Version 1)
Quarter: 2014Q2

REPORT INFORMATION
  Report Type: Spontaneous
  Country: FR (occurrence: FR)
  Receive Date: 20140416
  Receipt Date: 20140416
  Transmission Date: 20141212
  Serious: Yes (Hospitalization)
  Sender: FDA-Public Use
  Company Number: FR-JNJFOC-20140408546

PATIENT
  Age: 34 Year
  Sex: Male

DRUGS (8)
  1. REMICADE [Suspect]
     Indication: PRODUCT USED FOR UNKNOWN INDICATION
     Route: 042
     Dates: start: 20131118
  2. REMICADE [Suspect]
     Indication: PRODUCT USED FOR UNKNOWN INDICATION
     Route: 042
     Dates: start: 20131216, end: 20131216
  3. IMUREL [Concomitant]
     Route: 003
     Dates: start: 201311
  4. CORTANCYL [Concomitant]
     Route: 065
  5. ALENDRONIC ACID [Concomitant]
     Route: 065
  6. FOSAVANCE [Concomitant]
     Route: 048
  7. COLCHIMAX [Concomitant]
     Route: 048
  8. MIANSERIN [Concomitant]
     Route: 048
     Dates: end: 20140108

REACTIONS (1)
  - Depression [Recovering/Resolving]
